FAERS Safety Report 7088804-0 (Version None)
Quarter: 2010Q4

REPORT INFORMATION
  Report Type: 
  Country: None (occurrence: None)
  Receive Date: 20101108
  Receipt Date: 20101026
  Transmission Date: 20110411
  Serious: Yes (Other)
  Sender: FDA-Public Use
  Company Number: PHHY2010JP61507

PATIENT
  Age: 69 Year
  Sex: Male

DRUGS (1)
  1. LEPONEX / CLOZARIL (CLOZAPINE) LEX+TAB [Suspect]
     Indication: SCHIZOPHRENIA
     Dosage: UNK
     Route: 048
     Dates: start: 20100819, end: 20100914

REACTIONS (8)
  - BLOOD GLUCOSE INCREASED [None]
  - EXTRAPYRAMIDAL DISORDER [None]
  - INFECTION [None]
  - OXYGEN SATURATION DECREASED [None]
  - PYREXIA [None]
  - SHOCK [None]
  - TACHYCARDIA [None]
  - WHITE BLOOD CELL COUNT INCREASED [None]
